FAERS Safety Report 11443009 (Version 1)
Quarter: 2015Q3

REPORT INFORMATION
  Report Type: Spontaneous
  Country: DE (occurrence: DE)
  Receive Date: 20150901
  Receipt Date: 20150901
  Transmission Date: 20151125
  Serious: Yes (Hospitalization, Other)
  Sender: FDA-Public Use
  Company Number: DE-TEVA-589547GER

PATIENT
  Age: 75 Year
  Sex: Female

DRUGS (2)
  1. DOXEPIN-RATIOPHARM 25 MG FILM-COATED TABLETS [Suspect]
     Active Substance: DOXEPIN
     Dosage: 100 MILLIGRAM DAILY; 25-25MG-50MG
     Route: 048
     Dates: start: 20150813
  2. DOXEPIN-RATIOPHARM 25 MG FILM-COATED TAB LETS [Suspect]
     Active Substance: DOXEPIN
     Indication: DEPRESSION
     Dosage: 50 MILLIGRAM DAILY; 0-25MG-25MG
     Route: 048
     Dates: start: 20150805, end: 20150812

REACTIONS (4)
  - Loss of consciousness [Not Recovered/Not Resolved]
  - Dry mouth [Not Recovered/Not Resolved]
  - Dry throat [Not Recovered/Not Resolved]
  - Dysphagia [Not Recovered/Not Resolved]

NARRATIVE: CASE EVENT DATE: 201508
